FAERS Safety Report 25062771 (Version 1)
Quarter: 2025Q1

REPORT INFORMATION
  Report Type: Spontaneous
  Country: CN (occurrence: CN)
  Receive Date: 20250311
  Receipt Date: 20250311
  Transmission Date: 20250409
  Serious: Yes (Other)
  Sender: MACLEODS
  Company Number: CN-MLMSERVICE-20250224-PI429262-00130-1

PATIENT

DRUGS (2)
  1. TENOFOVIR [Suspect]
     Active Substance: TENOFOVIR
     Indication: Chronic hepatitis B
     Route: 048
  2. TENOFOVIR [Suspect]
     Active Substance: TENOFOVIR
     Indication: Hepatic cirrhosis

REACTIONS (3)
  - Spinal compression fracture [Unknown]
  - Osteoporosis [Unknown]
  - Fanconi syndrome [Recovered/Resolved]
